FAERS Safety Report 6914702-6 (Version None)
Quarter: 2010Q3

REPORT INFORMATION
  Report Type: 
  Country: None (occurrence: None)
  Receive Date: 20100804
  Receipt Date: 20100727
  Transmission Date: 20110219
  Serious: Yes (Other)
  Sender: FDA-Public Use
  Company Number: 2010SP041062

PATIENT
  Age: 45 Year
  Sex: Female

DRUGS (6)
  1. SAPHRIS [Suspect]
     Indication: BIPOLAR DISORDER
     Dosage: 10 MG; QD; SL
     Route: 060
  2. NEURONTIN [Concomitant]
  3. LIPOBID (LIPOBIND) [Concomitant]
  4. CYMBALTA [Concomitant]
  5. KLONOPIN [Concomitant]
  6. TOPAMAX [Concomitant]

REACTIONS (2)
  - AKATHISIA [None]
  - GENERALISED OEDEMA [None]
